FAERS Safety Report 21020169 (Version 8)
Quarter: 2023Q2

REPORT INFORMATION
  Report Type: Report from Study
  Country: CN (occurrence: CN)
  Receive Date: 20220628
  Receipt Date: 20230620
  Transmission Date: 20230722
  Serious: Yes (Hospitalization)
  Sender: FDA-Public Use
  Company Number: CN-BRISTOL-MYERS SQUIBB COMPANY-2022-049185

PATIENT
  Age: 77 Year
  Sex: Female
  Weight: 43 kg

DRUGS (6)
  1. PLACEBO [Suspect]
     Active Substance: UNSPECIFIED INGREDIENT
     Indication: Renal cell carcinoma
     Dosage: LAST DOSE WAS ON 07-APR-2022
     Route: 042
     Dates: start: 20211202
  2. METHYLCOBALAMIN [Concomitant]
     Active Substance: METHYLCOBALAMIN
     Indication: Product used for unknown indication
     Route: 048
     Dates: start: 20220223
  3. VITAMIN B1 [Concomitant]
     Active Substance: THIAMINE HYDROCHLORIDE
     Indication: Product used for unknown indication
     Dosage: DOSE: 1 UNIT NOS
     Route: 048
     Dates: start: 20220223
  4. SODIUM CHLORIDE [Concomitant]
     Active Substance: SODIUM CHLORIDE
     Indication: Hyponatraemia
     Dates: start: 202205, end: 202205
  5. BETAHISTINE MESILATE [Concomitant]
     Active Substance: BETAHISTINE MESILATE
     Indication: Vertebrobasilar insufficiency
     Dates: start: 202205, end: 202205
  6. COMPOUND ARMILLARIA MELLEA POLYSACCHARIDE AND POLYPEPTIDE [Concomitant]
     Indication: Vertebrobasilar insufficiency
     Dates: start: 202205, end: 202205

REACTIONS (1)
  - Hepatic failure [Not Recovered/Not Resolved]

NARRATIVE: CASE EVENT DATE: 20220513
